FAERS Safety Report 24592528 (Version 1)
Quarter: 2024Q4

REPORT INFORMATION
  Report Type: Spontaneous
  Country: CA (occurrence: CA)
  Receive Date: 20241108
  Receipt Date: 20241108
  Transmission Date: 20250115
  Serious: Yes (Death, Hospitalization)
  Sender: TEVA
  Company Number: CA-TEVA-VS-3259966

PATIENT
  Age: 77 Year
  Sex: Male

DRUGS (3)
  1. CARBOPLATIN [Suspect]
     Active Substance: CARBOPLATIN
     Indication: Product used for unknown indication
     Dosage: CARBOPLATIN INJECTION BP, DOSE FORM; SOLUTION INTRAVENOUS
     Route: 065
  2. GEMCITABINE [Suspect]
     Active Substance: GEMCITABINE
     Indication: Product used for unknown indication
     Dosage: GEMCITABINE INJECTION 5ML/25ML/50ML SINGLE USE VIALS, DOSE FORM: SOLUTION INTRAVENOUS
     Route: 065
  3. IMFINZI [Suspect]
     Active Substance: DURVALUMAB
     Indication: Product used for unknown indication
     Dosage: IMFINZI SINGLE-USE VIAL, DOSE FORM: SOLUTION INTRAVENOUS
     Route: 065

REACTIONS (1)
  - Pancytopenia [Fatal]
